FAERS Safety Report 4578375-2 (Version None)
Quarter: 2005Q1

REPORT INFORMATION
  Report Type: 
  Country: None (occurrence: None)
  Receive Date: 20050202
  Receipt Date: 20050202
  Transmission Date: 20050727
  Serious: Yes (Hospitalization)
  Sender: FDA-Public Use
  Company Number: None

PATIENT
  Age: 70 Year
  Sex: Male

DRUGS (8)
  1. EPTIFIBATIDE [Suspect]
     Indication: MYOCARDIAL INFARCTION
     Dates: start: 20040124
  2. HEPARIN [Suspect]
     Indication: MYOCARDIAL INFARCTION
     Dates: start: 20040124
  3. QUINAPRIL [Concomitant]
  4. PLAVIX [Concomitant]
  5. ASP [Concomitant]
  6. LIPITOR [Concomitant]
  7. NORVASC [Concomitant]
  8. TOPROL-XL [Concomitant]

REACTIONS (2)
  - ACUTE MYOCARDIAL INFARCTION [None]
  - THROMBOCYTOPENIA [None]
